FAERS Safety Report 22377396 (Version 1)
Quarter: 2023Q2

REPORT INFORMATION
  Report Type: Spontaneous
  Country: US (occurrence: US)
  Receive Date: 20230529
  Receipt Date: 20230529
  Transmission Date: 20230722
  Serious: Yes (Death, Other)
  Sender: FDA-Public Use
  Company Number: US-BRISTOL-MYERS SQUIBB COMPANY-2023-074640

PATIENT
  Age: 51 Year
  Sex: Female

DRUGS (1)
  1. OPDIVO [Suspect]
     Active Substance: NIVOLUMAB
     Indication: Malignant pleural effusion
     Dosage: DOSE : 480MG;     FREQ : EVERY 4 WEEKS
     Route: 042

REACTIONS (1)
  - Death [Fatal]
